FAERS Safety Report 9126102 (Version 1)
Quarter: 2013Q1

REPORT INFORMATION
  Report Type: Spontaneous
  Country: JP (occurrence: JP)
  Receive Date: 20130117
  Receipt Date: 20130117
  Transmission Date: 20140127
  Serious: Yes (Other)
  Sender: FDA-Public Use
  Company Number: JP-ASTELLAS-2013JP000303

PATIENT
  Age: 12 Month
  Sex: Male

DRUGS (4)
  1. PROGRAF [Suspect]
     Indication: IMMUNOSUPPRESSANT DRUG THERAPY
     Route: 065
  2. PROGRAF [Suspect]
     Indication: BONE MARROW FAILURE
  3. DEXAMETHASONE [Concomitant]
     Indication: IMMUNOSUPPRESSANT DRUG THERAPY
     Route: 065
  4. CYCLOSPORIN A [Concomitant]
     Indication: IMMUNOSUPPRESSANT DRUG THERAPY
     Route: 065

REACTIONS (4)
  - Drug ineffective for unapproved indication [Unknown]
  - Drug ineffective [Unknown]
  - Bone marrow failure [Unknown]
  - Chronic graft versus host disease [Unknown]
